FAERS Safety Report 16794812 (Version 1)
Quarter: 2019Q3

REPORT INFORMATION
  Report Type: Spontaneous
  Country: US (occurrence: US)
  Receive Date: 20190911
  Receipt Date: 20190911
  Transmission Date: 20191005
  Serious: No
  Sender: FDA-Public Use
  Company Number: US-PFIZER INC-2019391085

PATIENT
  Age: 51 Year
  Sex: Male

DRUGS (6)
  1. ASA [Suspect]
     Active Substance: ASPIRIN
     Dosage: UNK
  2. PROTONIX [Suspect]
     Active Substance: PANTOPRAZOLE SODIUM
     Dosage: UNK
  3. ALBUTEROL [SALBUTAMOL] [Suspect]
     Active Substance: ALBUTEROL
     Dosage: UNK
  4. ADVAIR HFA [Suspect]
     Active Substance: FLUTICASONE PROPIONATE\SALMETEROL XINAFOATE
     Dosage: UNK
  5. HUMALOG [Suspect]
     Active Substance: INSULIN LISPRO
     Dosage: UNK
  6. COZAAR [Suspect]
     Active Substance: LOSARTAN POTASSIUM
     Dosage: UNK

REACTIONS (1)
  - Drug hypersensitivity [Unknown]
